FAERS Safety Report 10207058 (Version 5)
Quarter: 2014Q3

REPORT INFORMATION
  Report Type: Spontaneous
  Country: JP (occurrence: JP)
  Receive Date: 20140530
  Receipt Date: 20140821
  Transmission Date: 20150326
  Serious: Yes (Death, Life-Threatening, Hospitalization, Other)
  Sender: FDA-Public Use
  Company Number: JP-B.I. PHARMACEUTICALS,INC./RIDGEFIELD-2014-BI-23840NB

PATIENT
  Age: 75 Year
  Sex: Female
  Weight: 41 kg

DRUGS (13)
  1. TEGRETOL [Concomitant]
     Active Substance: CARBAMAZEPINE
     Indication: CEREBRAL INFARCTION
     Dosage: 200 MG
     Route: 048
  2. ALDACTONE [Concomitant]
     Active Substance: SPIRONOLACTONE
     Indication: MITRAL VALVE INCOMPETENCE
     Dosage: 25 MG
     Route: 048
  3. PRAZAXA [Suspect]
     Active Substance: DABIGATRAN ETEXILATE MESYLATE
     Indication: ATRIAL FIBRILLATION
     Dosage: 220 MG
     Route: 048
     Dates: start: 201204, end: 20140521
  4. FRANDOL S [Concomitant]
     Indication: HYPERTENSION
     Dosage: 40 MG
     Route: 062
  5. TOUGHMAC E [Concomitant]
     Active Substance: AMYLASE\LIPASE\PROTEASE
     Route: 048
  6. ACINON [Concomitant]
     Active Substance: NIZATIDINE
     Indication: MITRAL VALVE INCOMPETENCE
     Dosage: 300 MG
     Route: 048
  7. DOGMATYL [Concomitant]
     Active Substance: SULPIRIDE
     Indication: INSOMNIA
     Dosage: 150 MG
     Route: 048
  8. CARVEDILOL. [Concomitant]
     Active Substance: CARVEDILOL
     Indication: MITRAL VALVE INCOMPETENCE
     Dosage: 10 MG
     Route: 048
  9. DIART [Concomitant]
     Active Substance: AZOSEMIDE
     Indication: MITRAL VALVE INCOMPETENCE
     Dosage: 90 MG
     Route: 048
  10. OMEPRAZOLE. [Concomitant]
     Active Substance: OMEPRAZOLE
     Indication: GASTRITIS
     Dosage: 10 MG
     Route: 048
  11. NEUROTROPIN [Concomitant]
     Active Substance: NEUROTROPIN
     Dosage: 4 U
     Route: 048
  12. DEPAS [Concomitant]
     Active Substance: ETIZOLAM
     Indication: INSOMNIA
     Dosage: 0.5 MG
     Route: 048
  13. AMLODIPINE [Concomitant]
     Active Substance: AMLODIPINE BESYLATE
     Indication: HYPERTENSION
     Dosage: 2.5 MG
     Route: 048

REACTIONS (6)
  - Pericardial haemorrhage [Fatal]
  - Respiratory arrest [Unknown]
  - Cardiac failure [Unknown]
  - Altered state of consciousness [Unknown]
  - Hypoxia [Unknown]
  - Stupor [Fatal]

NARRATIVE: CASE EVENT DATE: 20140524
